FAERS Safety Report 8484895-0 (Version None)
Quarter: 2012Q3

REPORT INFORMATION
  Report Type: 
  Country: None (occurrence: None)
  Receive Date: 20120703
  Receipt Date: 20120625
  Transmission Date: 20120928
  Serious: Yes (Hospitalization, Other)
  Sender: FDA-Public Use
  Company Number: US-ASTELLAS-2012US005719

PATIENT

DRUGS (8)
  1. TOPROL-XL [Concomitant]
     Indication: HYPERTENSION
     Dosage: 100 MG, BID
     Route: 048
     Dates: start: 20060101
  2. PROGRAF [Suspect]
     Indication: RENAL TRANSPLANT
     Dosage: 7 MG, BID
     Route: 065
     Dates: start: 20060901
  3. CELLCEPT [Concomitant]
     Indication: RENAL TRANSPLANT
     Dosage: 500 MG, BID
     Route: 048
     Dates: start: 20060901
  4. CEPHALEXIN [Concomitant]
     Indication: ANTIBIOTIC THERAPY
     Dosage: 500 MG, BID
     Route: 048
     Dates: start: 20120320
  5. FERROUS SULFATE TAB [Concomitant]
     Indication: BLOOD IRON
     Dosage: 5 G, BID
     Route: 048
     Dates: start: 20111020
  6. GABAPENTIN [Concomitant]
     Indication: PAIN
     Dosage: 300 MG, TID
     Route: 048
     Dates: start: 20120201
  7. OXYCODONE HCL [Concomitant]
     Indication: PAIN
     Dosage: 30 MG, Q 4 HRS PRN
     Route: 048
     Dates: start: 20110801
  8. PRAVASTATIN [Concomitant]
     Indication: BLOOD CHOLESTEROL INCREASED
     Dosage: 40 MG, UID/QD
     Route: 048
     Dates: start: 20060901

REACTIONS (3)
  - HOSPITALISATION [None]
  - AMPUTATION [None]
  - INFECTION [None]
